FAERS Safety Report 10484064 (Version 1)
Quarter: 2014Q3

REPORT INFORMATION
  Report Type: Spontaneous
  Country: US (occurrence: None)
  Receive Date: 20140926
  Receipt Date: 20140926
  Transmission Date: 20150326
  Serious: Yes (Other)
  Sender: FDA-Public Use
  Company Number: HA14-351-AE

PATIENT
  Age: 64 Year
  Sex: Female
  Weight: 117.94 kg

DRUGS (3)
  1. LEVOTHYROXINE [Concomitant]
     Active Substance: LEVOTHYROXINE
  2. ASPIRIN. [Concomitant]
     Active Substance: ASPIRIN
  3. SMZ/TMP DS 800-160 [Suspect]
     Active Substance: SULFAMETHOXAZOLE\TRIMETHOPRIM
     Indication: SINUSITIS
     Dosage: 2 TABLETS A DAY, ORAL
     Route: 048
     Dates: start: 20140831, end: 20140915

REACTIONS (11)
  - Drug ineffective [None]
  - Unevaluable event [None]
  - Dizziness [None]
  - Heart rate increased [None]
  - Pyrexia [None]
  - Dysstasia [None]
  - Feeling hot [None]
  - Asthenia [None]
  - Contraindication to medical treatment [None]
  - Feeling abnormal [None]
  - Fear [None]

NARRATIVE: CASE EVENT DATE: 20140901
